FAERS Safety Report 9976240 (Version 1)
Quarter: 2014Q1

REPORT INFORMATION
  Report Type: Report from Study
  Country: US (occurrence: US)
  Receive Date: 20140306
  Receipt Date: 20140306
  Transmission Date: 20141002
  Serious: Yes (Other)
  Sender: FDA-Public Use
  Company Number: US-ABBVIE-13P-163-1164196-00

PATIENT
  Sex: Female

DRUGS (3)
  1. HUMIRA [Suspect]
     Indication: CROHN^S DISEASE
     Dosage: LOADING DOSE OF 4 PENS
     Route: 058
     Dates: start: 20130214
  2. CIPRO [Concomitant]
     Indication: PRODUCT USED FOR UNKNOWN INDICATION
  3. ANALPRAM [Concomitant]
     Indication: PRODUCT USED FOR UNKNOWN INDICATION

REACTIONS (1)
  - Genital abscess [Not Recovered/Not Resolved]
